FAERS Safety Report 21608542 (Version 2)
Quarter: 2023Q4

REPORT INFORMATION
  Report Type: Spontaneous
  Country: US (occurrence: US)
  Receive Date: 20221117
  Receipt Date: 20231009
  Transmission Date: 20240109
  Serious: Yes (Death, Hospitalization, Other)
  Sender: FDA-Public Use
  Company Number: US-GILEAD-2022-0605339

PATIENT
  Age: 65 Year
  Sex: Male

DRUGS (2)
  1. VEKLURY [Suspect]
     Active Substance: REMDESIVIR
     Indication: COVID-19
     Dosage: UNK QD
     Route: 065
     Dates: start: 20201226
  2. DEXAMETHASONE [Concomitant]
     Active Substance: DEXAMETHASONE
     Dosage: UNK QD
     Dates: start: 20201224

REACTIONS (4)
  - Multiple organ dysfunction syndrome [Fatal]
  - Renal failure [Unknown]
  - Decubitus ulcer [Unknown]
  - Pain [Unknown]
